FAERS Safety Report 7339240-0 (Version None)
Quarter: 2011Q1

REPORT INFORMATION
  Report Type: 
  Country: None (occurrence: None)
  Receive Date: 20110308
  Receipt Date: 20110225
  Transmission Date: 20110831
  Serious: Yes (Hospitalization)
  Sender: FDA-Public Use
  Company Number: CH-JNJFOC-20110205817

PATIENT
  Age: 63 Year
  Sex: Female
  Weight: 87 kg

DRUGS (7)
  1. DAFALGAN [Concomitant]
     Indication: ARTHRALGIA
     Route: 048
  2. ELTROXIN [Concomitant]
     Indication: HYPOPITUITARISM
     Route: 048
  3. HYDROCORTISONE [Concomitant]
     Indication: HYPOPITUITARISM
     Route: 048
  4. GOLIMUMAB [Suspect]
     Indication: RHEUMATOID ARTHRITIS
     Route: 058
  5. METHOTREXATE [Concomitant]
     Indication: RHEUMATOID ARTHRITIS
     Route: 048
  6. TAMBOCOR [Concomitant]
     Indication: ATRIAL FIBRILLATION
     Route: 048
  7. GOLIMUMAB [Suspect]
     Route: 058

REACTIONS (1)
  - MUCOSAL INDURATION [None]
